FAERS Safety Report 5932103-4 (Version None)
Quarter: 2008Q4

REPORT INFORMATION
  Report Type: 
  Country: None (occurrence: None)
  Receive Date: 20081027
  Receipt Date: 20081020
  Transmission Date: 20090506
  Serious: Yes (Other)
  Sender: FDA-Public Use
  Company Number: US-JNJCH-2008052526

PATIENT
  Age: 35 Year
  Sex: Female
  Weight: 48.5 kg

DRUGS (3)
  1. LISTERINE WHITENING VIBRANT WHITE PRE-BRUSH RINSE [Suspect]
     Indication: DENTAL CARE
     Dosage: TEXT:1/2 CAPFUL 1 X
     Route: 048
     Dates: start: 20081017, end: 20081017
  2. ORAL CONTRACEPTIVE NOS [Concomitant]
     Indication: CONTRACEPTION
     Dosage: TEXT:UNSPECIFIED
     Route: 048
  3. NEURONTIN [Concomitant]
     Indication: PAIN
     Dosage: TEXT:UNSPECIFIED
     Route: 065

REACTIONS (3)
  - APPLICATION SITE BURN [None]
  - GLOSSITIS [None]
  - ORAL MUCOSAL EXFOLIATION [None]
